FAERS Safety Report 15956217 (Version 3)
Quarter: 2019Q1

REPORT INFORMATION
  Report Type: Spontaneous
  Country: FR (occurrence: FR)
  Receive Date: 20190213
  Receipt Date: 20190306
  Transmission Date: 20190417
  Serious: Yes (Other)
  Sender: FDA-Public Use
  Company Number: PHHY2019FR034080

PATIENT
  Age: 96 Year
  Sex: Male

DRUGS (1)
  1. FUROSEMIDE SANDOZ [Suspect]
     Active Substance: FUROSEMIDE
     Indication: PRODUCT USED FOR UNKNOWN INDICATION
     Dosage: 40 MG, UNK
     Route: 065
     Dates: start: 20190204

REACTIONS (2)
  - Drug ineffective [Unknown]
  - Urinary retention [Unknown]

NARRATIVE: CASE EVENT DATE: 20190204
